FAERS Safety Report 19793292 (Version 9)
Quarter: 2024Q3

REPORT INFORMATION
  Report Type: Report from Study
  Country: US (occurrence: US)
  Receive Date: 20210906
  Receipt Date: 20240814
  Transmission Date: 20241017
  Serious: Yes (Other)
  Sender: TAKEDA
  Company Number: US-SHIRE-US202012611

PATIENT
  Sex: Female

DRUGS (4)
  1. HUMAN IMMUNOGLOBULIN G [Suspect]
     Active Substance: HUMAN IMMUNOGLOBULIN G
     Indication: Immunodeficiency common variable
     Dosage: UNK,UNK Q2WEEKS
     Route: 058
  2. HUMAN IMMUNOGLOBULIN G [Suspect]
     Active Substance: HUMAN IMMUNOGLOBULIN G
     Indication: Primary immunodeficiency syndrome
  3. TRELEGY ELLIPTA [Suspect]
     Active Substance: FLUTICASONE FUROATE\UMECLIDINIUM BROMIDE\VILANTEROL TRIFENATATE
     Indication: Product used for unknown indication
     Dosage: UNK
     Route: 065
  4. OXYGEN [Concomitant]
     Active Substance: OXYGEN
     Dosage: UNK
     Route: 065

REACTIONS (33)
  - Pancreatitis [Unknown]
  - Spinal fracture [Unknown]
  - Foot fracture [Unknown]
  - Staphylococcal infection [Unknown]
  - Pathogen resistance [Unknown]
  - Rhinitis [Unknown]
  - Pancreatitis chronic [Unknown]
  - Sepsis [Unknown]
  - Portal hypertension [Unknown]
  - Type 1 diabetes mellitus [Unknown]
  - Bronchiectasis [Unknown]
  - Alpha-1 antitrypsin deficiency [Unknown]
  - Cardiac disorder [Unknown]
  - Splenomegaly [Unknown]
  - Fall [Recovered/Resolved]
  - Aortic aneurysm [Unknown]
  - Asthma [Unknown]
  - Fatigue [Unknown]
  - Ammonia increased [Unknown]
  - Cerebral disorder [Unknown]
  - Post-acute COVID-19 syndrome [Unknown]
  - Memory impairment [Unknown]
  - Hyperhidrosis [Unknown]
  - Nephropathy [Unknown]
  - Hypersomnia [Unknown]
  - Fibromyalgia [Unknown]
  - Psoriasis [Unknown]
  - Eczema [Unknown]
  - Respiratory syncytial virus infection [Not Recovered/Not Resolved]
  - Osteopenia [Unknown]
  - Tooth loss [Unknown]
  - COVID-19 [Unknown]
  - Oropharyngeal pain [Unknown]

NARRATIVE: CASE EVENT DATE: 20180101
